FAERS Safety Report 12405144 (Version 2)
Quarter: 2016Q3

REPORT INFORMATION
  Report Type: Spontaneous
  Country: DE (occurrence: DE)
  Receive Date: 20160525
  Receipt Date: 20160712
  Transmission Date: 20161109
  Serious: Yes (Other)
  Sender: FDA-Public Use
  Company Number: PHHY2016DE070443

PATIENT
  Sex: Male

DRUGS (9)
  1. EXFORGE [Suspect]
     Active Substance: AMLODIPINE BESYLATE\VALSARTAN
     Indication: PRODUCT USED FOR UNKNOWN INDICATION
     Dosage: 1 DF, QD (ONCE IN THE EVENING)
     Route: 065
  2. OMEPRAZOLE. [Concomitant]
     Active Substance: OMEPRAZOLE
     Indication: PRODUCT USED FOR UNKNOWN INDICATION
     Dosage: 1 DF, QD (20 UNIT UNSPECIFIED)
     Route: 065
  3. SPIRONOLACTONE. [Concomitant]
     Active Substance: SPIRONOLACTONE
     Indication: PRODUCT USED FOR UNKNOWN INDICATION
     Dosage: 1 DF, QD (25 UNIT UNSPECIFIED)
     Route: 065
  4. SIMVASTATIN. [Concomitant]
     Active Substance: SIMVASTATIN
     Indication: PRODUCT USED FOR UNKNOWN INDICATION
     Dosage: 1 DF, QD (20 UNIT UNSPECIFIED)
     Route: 065
  5. LEVEMIR [Concomitant]
     Active Substance: INSULIN DETEMIR
     Indication: PRODUCT USED FOR UNKNOWN INDICATION
     Dosage: 26 UNIT UNSPECIFIED AT NIGHT
     Route: 065
  6. EXFORGE HCT [Suspect]
     Active Substance: AMLODIPINE BESYLATE\HYDROCHLOROTHIAZIDE\VALSARTAN
     Indication: PRODUCT USED FOR UNKNOWN INDICATION
     Dosage: 1 DF, QD (ONCES IN THE MORNING)
     Route: 065
  7. ASPIRIN. [Concomitant]
     Active Substance: ASPIRIN
     Indication: PRODUCT USED FOR UNKNOWN INDICATION
     Dosage: 1 DF, QD (100 UNIT UNSPECIFIED)
     Route: 065
  8. NOVORAPID [Concomitant]
     Active Substance: INSULIN ASPART
     Indication: PRODUCT USED FOR UNKNOWN INDICATION
     Dosage: FREQUNCY (28-24-20)
     Route: 065
  9. TORASEMIDE [Concomitant]
     Active Substance: TORSEMIDE
     Indication: PRODUCT USED FOR UNKNOWN INDICATION
     Dosage: 1 DF, QD (10 UNIT UNSPECIFIED)
     Route: 065

REACTIONS (14)
  - Diabetes mellitus [Recovering/Resolving]
  - Diabetic foot [Recovering/Resolving]
  - Arrhythmia [Recovering/Resolving]
  - Hyperlipidaemia [Recovering/Resolving]
  - Diabetic neuropathy [Recovering/Resolving]
  - Hypertensive crisis [Recovering/Resolving]
  - Gastritis erosive [Recovering/Resolving]
  - Cardiac failure chronic [Recovering/Resolving]
  - Osteoarthritis [Recovering/Resolving]
  - Dyspnoea exertional [Recovering/Resolving]
  - Coronary artery disease [Recovering/Resolving]
  - Renal failure [Recovering/Resolving]
  - Type 2 diabetes mellitus [Recovering/Resolving]
  - Cerebrovascular accident [Recovering/Resolving]

NARRATIVE: CASE EVENT DATE: 2012
